FAERS Safety Report 8235860-X (Version None)
Quarter: 2012Q1

REPORT INFORMATION
  Report Type: 
  Country: None (occurrence: None)
  Receive Date: 20120326
  Receipt Date: 20120320
  Transmission Date: 20120608
  Serious: No
  Sender: FDA-Public Use
  Company Number: US-PFIZER INC-2012073746

PATIENT
  Sex: Female
  Weight: 77.1 kg

DRUGS (5)
  1. ACETAMINOPHEN AND HYDROCODONE BITARTRATE [Concomitant]
     Dosage: UNK, AS NEEDED
     Dates: start: 20110101
  2. METHADONE [Concomitant]
     Dosage: 5 MG, 2X/DAY
     Dates: start: 20110101
  3. OMEPRAZOLE [Concomitant]
     Indication: GASTRIC DISORDER
     Dosage: 20 MG
     Dates: start: 20110101
  4. AROMASIN [Suspect]
     Indication: BONE NEOPLASM MALIGNANT
     Dosage: 25 MG, 1X/DAY
     Dates: start: 20110101, end: 20120301
  5. VITAMIN D [Concomitant]
     Dosage: 50000 IU, 2X/WEEK
     Dates: start: 20110101

REACTIONS (2)
  - MUSCLE SPASMS [None]
  - MUSCULAR WEAKNESS [None]
